FAERS Safety Report 16237217 (Version 1)
Quarter: 2019Q2

REPORT INFORMATION
  Report Type: Spontaneous
  Country: US (occurrence: US)
  Receive Date: 20190320
  Receipt Date: 20190320
  Transmission Date: 20190711
  Serious: No
  Sender: FDA-Public Use
  Company Number: None

PATIENT
  Age: 42 Year
  Sex: Male

DRUGS (1)
  1. CEFAZOLIN SODIUM 1GM APOTEX [Suspect]
     Active Substance: CEFAZOLIN SODIUM
     Indication: OSTEOMYELITIS
     Route: 042
     Dates: start: 20190306

REACTIONS (4)
  - Paraesthesia [None]
  - Nausea [None]
  - Product quality issue [None]
  - Trismus [None]

NARRATIVE: CASE EVENT DATE: 201903
